FAERS Safety Report 11280995 (Version 2)
Quarter: 2015Q3

REPORT INFORMATION
  Report Type: Spontaneous
  Country: DK (occurrence: DE)
  Receive Date: 20150717
  Receipt Date: 20150925
  Transmission Date: 20151125
  Serious: Yes (Other)
  Sender: FDA-Public Use
  Company Number: DE-FRI-1000078085

PATIENT
  Sex: Female
  Weight: 65 kg

DRUGS (3)
  1. CITALOPRAM [Suspect]
     Active Substance: CITALOPRAM HYDROBROMIDE
     Indication: PRODUCT USED FOR UNKNOWN INDICATION
     Dosage: 40 MG
     Route: 048
  2. MIRTAZAPINE. [Concomitant]
     Active Substance: MIRTAZAPINE
     Indication: PRODUCT USED FOR UNKNOWN INDICATION
     Dosage: 15 MG
     Route: 048
  3. VALETTE [Suspect]
     Active Substance: DIENOGEST\ETHINYL ESTRADIOL
     Indication: ORAL CONTRACEPTION
     Dosage: 1 DF: 0.03 MILLIGRAM ETHINYLESTRADIOL / 2 MG DIENOGEST
     Route: 048

REACTIONS (3)
  - Pregnancy on oral contraceptive [Unknown]
  - Caesarean section [Unknown]
  - Placental insufficiency [Unknown]
